FAERS Safety Report 10262884 (Version 2)
Quarter: 2014Q2

REPORT INFORMATION
  Report Type: Report from Study
  Country: US (occurrence: US)
  Receive Date: 20140626
  Receipt Date: 20140626
  Transmission Date: 20141212
  Serious: Yes (Other)
  Sender: FDA-Public Use
  Company Number: US-MYLANLABS-2013S1021172

PATIENT
  Age: 48 Year
  Sex: Female
  Weight: 72.58 kg

DRUGS (7)
  1. CLOZAPINE TABLETS [Suspect]
     Indication: SCHIZOPHRENIA
     Route: 048
     Dates: start: 20130904, end: 20130918
  2. CLOZAPINE TABLETS [Suspect]
     Route: 048
     Dates: start: 20130904, end: 20130918
  3. CLONAZEPAM [Concomitant]
  4. COGENTIN [Concomitant]
  5. LEVOFLOXACIN [Concomitant]
  6. SEROQUEL [Concomitant]
  7. MULTIVITAMIN [Concomitant]

REACTIONS (1)
  - Granulocytopenia [Recovered/Resolved]
